FAERS Safety Report 6463543-5 (Version None)
Quarter: 2009Q4

REPORT INFORMATION
  Report Type: 
  Country: None (occurrence: None)
  Receive Date: 20091123
  Receipt Date: 20091105
  Transmission Date: 20100525
  Serious: Yes (Other)
  Sender: FDA-Public Use
  Company Number: 003712

PATIENT
  Age: 60 Year
  Sex: Male

DRUGS (4)
  1. MACUGEN [Suspect]
     Indication: CHOROIDAL NEOVASCULARISATION
     Dosage: 0.3 MG, INTRAOCULAR
     Route: 031
     Dates: start: 20090108, end: 20090326
  2. MACUGEN [Suspect]
     Indication: MACULAR DEGENERATION
     Dosage: 0.3 MG, INTRAOCULAR
     Route: 031
     Dates: start: 20090108, end: 20090326
  3. LEVOFLOXACIN [Concomitant]
  4. TRIAMCINOLONE ACETONIDE [Concomitant]

REACTIONS (1)
  - RETINAL VEIN OCCLUSION [None]
